FAERS Safety Report 10382993 (Version 2)
Quarter: 2018Q4

REPORT INFORMATION
  Report Type: Report from Study
  Country: US (occurrence: US)
  Receive Date: 20140813
  Receipt Date: 20181031
  Transmission Date: 20190204
  Serious: No
  Sender: FDA-Public Use
  Company Number: US-SA-2014SA080167

PATIENT
  Age: 35 Year
  Sex: Female

DRUGS (1)
  1. AGALSIDASE BETA [Suspect]
     Active Substance: AGALSIDASE BETA
     Indication: FABRY^S DISEASE
     Dosage: 81 MG, QOW
     Dates: start: 20121205

REACTIONS (5)
  - Malaise [Unknown]
  - Concussion [Recovering/Resolving]
  - General physical health deterioration [Unknown]
  - Upper respiratory tract infection [Recovering/Resolving]
  - Migraine [Recovering/Resolving]

NARRATIVE: CASE EVENT DATE: 20140526
